FAERS Safety Report 14918044 (Version 4)
Quarter: 2019Q3

REPORT INFORMATION
  Report Type: Report from Study
  Country: US (occurrence: US)
  Receive Date: 20180521
  Receipt Date: 20190704
  Transmission Date: 20191004
  Serious: No
  Sender: FDA-Public Use
  Company Number: PHEH2018US018130

PATIENT
  Sex: Female

DRUGS (1)
  1. ENTRESTO [Suspect]
     Active Substance: SACUBITRIL\VALSARTAN
     Indication: CARDIAC FAILURE CHRONIC
     Route: 048

REACTIONS (6)
  - Fatigue [Unknown]
  - Confusional state [Unknown]
  - Asthenia [Unknown]
  - Ear disorder [Unknown]
  - Dizziness [Unknown]
  - Hypersensitivity [Unknown]
